FAERS Safety Report 8420437-3 (Version None)
Quarter: 2012Q2

REPORT INFORMATION
  Report Type: 
  Country: None (occurrence: None)
  Receive Date: 20120607
  Receipt Date: 20120605
  Transmission Date: 20120825
  Serious: Yes (Hospitalization)
  Sender: FDA-Public Use
  Company Number: US-BAYER-2012-048406

PATIENT
  Age: 32 Year
  Sex: Female
  Weight: 130.98 kg

DRUGS (10)
  1. SORAFENIB (RAF KINASE INHIBITOR) [Suspect]
     Indication: BREAST CANCER
     Dosage: 400 MG, BID
     Route: 048
     Dates: start: 20120229, end: 20120509
  2. LISINOPRIL [Concomitant]
     Indication: HYPERTENSION
     Dosage: 20 MG, UNK
     Dates: start: 20111001
  3. IXABEPILONE [Suspect]
     Indication: BREAST CANCER
     Dosage: 70 MG, UNK
     Route: 042
     Dates: start: 20120229, end: 20120502
  4. AMLODIPINE [Concomitant]
     Indication: HYPERTENSION
     Dosage: 10 MG, UNK
     Dates: start: 20111001
  5. METOPROLOL [Concomitant]
     Indication: HYPERTENSION
     Dosage: 25 MG, UNK
     Dates: start: 20111001
  6. KEFLEX [Concomitant]
     Indication: ANTIBIOTIC PROPHYLAXIS
     Dosage: 500 MG, UNK
     Dates: start: 20120220
  7. GABAPENTIN [Concomitant]
     Indication: NEURALGIA
     Dosage: 300 MG, UNK
     Dates: start: 20111101
  8. COMPAZINE [Concomitant]
     Indication: NAUSEA
     Dosage: 10 MG, UNK
     Dates: start: 20100901
  9. LORTAB [Concomitant]
     Indication: PAIN
     Dosage: 10 MG, UNK
     Dates: start: 20110401
  10. AMBIEN [Concomitant]
     Indication: INSOMNIA
     Dosage: 5 MG, UNK
     Dates: start: 20100801

REACTIONS (1)
  - JUGULAR VEIN THROMBOSIS [None]
